FAERS Safety Report 8531040 (Version 3)
Quarter: 2012Q4

REPORT INFORMATION
  Report Type: 
  Country: US (occurrence: US)
  Receive Date: 20120426
  Receipt Date: 20120921
  Transmission Date: 20130627
  Serious: Yes (Life-Threatening, Hospitalization, Other)
  Sender: FDA-Public Use
  Company Number: US-BAYER-2012-039232

PATIENT
  Age: 19 Year
  Sex: Female
  Weight: 98.87 kg

DRUGS (1)
  1. YAZ [Suspect]
     Indication: CONTRACEPTION
     Dosage: UNK
     Dates: start: 200805, end: 200811

REACTIONS (5)
  - Cholecystectomy [None]
  - Appendix disorder [None]
  - Infertility female [None]
  - Pain [None]
  - Injury [None]
